FAERS Safety Report 8231030-X (Version None)
Quarter: 2012Q1

REPORT INFORMATION
  Report Type: 
  Country: None (occurrence: None)
  Receive Date: 20120320
  Receipt Date: 20120309
  Transmission Date: 20120608
  Serious: Yes (Hospitalization, Other)
  Sender: FDA-Public Use
  Company Number: PD 155

PATIENT
  Age: 20 Year
  Sex: Male

DRUGS (2)
  1. LEVETIRACETAM [Suspect]
     Indication: GRAND MAL CONVULSION
     Dosage: 1500 MG/DAY
  2. DIVALPROEX SODIUM [Concomitant]

REACTIONS (4)
  - AGGRESSION [None]
  - SPEECH DISORDER [None]
  - AGITATION [None]
  - PSYCHOTIC DISORDER [None]
